FAERS Safety Report 24155017 (Version 1)
Quarter: 2024Q3

REPORT INFORMATION
  Report Type: Spontaneous
  Country: US (occurrence: US)
  Receive Date: 20240731
  Receipt Date: 20240731
  Transmission Date: 20241017
  Serious: Yes (Other)
  Sender: DR REDDYS
  Company Number: US-DRL-USA-LIT/USA/24/0010857

PATIENT

DRUGS (2)
  1. BENDAMUSTINE [Suspect]
     Active Substance: BENDAMUSTINE
     Indication: Mantle cell lymphoma
     Dosage: 90 MG/M2 IV DAY1 AND 2 EVERY 28DAY FOR 6 CYCLE
     Route: 042
  2. OBINUTUZUMAB [Suspect]
     Active Substance: OBINUTUZUMAB
     Indication: Mantle cell lymphoma
     Dosage: IV (CYCLE 1 = 100 MG D1, 900 MG D2, AND 1000 MG D8 AND 15; THEN 1000 MG D1, CY 2-6).
     Route: 042

REACTIONS (2)
  - Cardiac arrest [Unknown]
  - Sepsis [Unknown]
